FAERS Safety Report 11652194 (Version 2)
Quarter: 2015Q4

REPORT INFORMATION
  Report Type: Spontaneous
  Country: None (occurrence: None)
  Receive Date: 20151020
  Receipt Date: 20151022
  Transmission Date: 20160304
  Serious: Yes (Hospitalization)
  Sender: FDA-Public Use
  Company Number: 1713747-2015-999395

PATIENT
  Age: 47 Year
  Sex: Female
  Weight: 84 kg

DRUGS (12)
  1. GENTAMICIN. [Concomitant]
     Active Substance: GENTAMICIN
  2. METOPROLOL SUCCINATE. [Concomitant]
     Active Substance: METOPROLOL SUCCINATE
  3. NIFEDIPINE. [Concomitant]
     Active Substance: NIFEDIPINE
  4. DELFLEX WITH DEXTROSE 2.5% LOW MAGNESIUM LOW CALCIUM [Suspect]
     Active Substance: CALCIUM CHLORIDE\DEXTROSE MONOHYDRATE\MAGNESIUM CHLORIDE\SODIUM CHLORIDE\SODIUM LACTATE
     Indication: CHRONIC KIDNEY DISEASE
     Route: 033
     Dates: start: 20131001
  5. LIBERTY CYCLER [Concomitant]
     Active Substance: DEVICE
  6. LIBERTY CYCLER SET [Concomitant]
     Active Substance: DEVICE
  7. SENSIPAR (CINACALCET) [Concomitant]
  8. CLONAZEPAM. [Concomitant]
     Active Substance: CLONAZEPAM
  9. ESCITALOPRAM OXALATE. [Concomitant]
     Active Substance: ESCITALOPRAM OXALATE
  10. RENVELA [Concomitant]
     Active Substance: SEVELAMER CARBONATE
  11. EPOGEN (EPOETIN ALPHA) [Concomitant]
  12. OMEPRAZOLE. [Concomitant]
     Active Substance: OMEPRAZOLE

REACTIONS (1)
  - Peritonitis [None]

NARRATIVE: CASE EVENT DATE: 20150913
